FAERS Safety Report 7238298-7 (Version None)
Quarter: 2011Q1

REPORT INFORMATION
  Report Type: 
  Country: None (occurrence: None)
  Receive Date: 20110121
  Receipt Date: 20110111
  Transmission Date: 20110831
  Serious: Yes (Hospitalization)
  Sender: FDA-Public Use
  Company Number: FR-SANOFI-AVENTIS-2011SA002178

PATIENT
  Age: 72 Year
  Sex: Female

DRUGS (8)
  1. PEPDINE [Suspect]
     Route: 048
  2. AUGMENTIN '125' [Concomitant]
     Indication: INFECTION
     Route: 065
     Dates: start: 20100721, end: 20100721
  3. ROSUVASTATIN CALCIUM [Suspect]
     Route: 048
     Dates: end: 20100724
  4. ZANIDIP [Suspect]
     Route: 048
  5. LASIX [Suspect]
     Route: 048
  6. PARACETAMOL [Concomitant]
     Route: 065
     Dates: start: 20100722, end: 20100722
  7. ATENOLOL [Suspect]
     Route: 048
  8. EUPRESSYL [Suspect]
     Route: 048

REACTIONS (4)
  - URINARY TRACT INFECTION [None]
  - BRONCHIECTASIS [None]
  - BRONCHOSPASM [None]
  - BACK PAIN [None]
